FAERS Safety Report 11914497 (Version 1)
Quarter: 2016Q1

REPORT INFORMATION
  Report Type: Spontaneous
  Country: PL (occurrence: PL)
  Receive Date: 20160113
  Receipt Date: 20160113
  Transmission Date: 20160526
  Serious: Yes (Other)
  Sender: FDA-Public Use
  Company Number: PL-BAXTER-2016BAX000804

PATIENT
  Age: 43 Year
  Sex: Male

DRUGS (36)
  1. MITOXANTRONE [Suspect]
     Active Substance: MITOXANTRONE HYDROCHLORIDE
     Indication: RICHTER^S SYNDROME
     Dosage: THIRD LINE CHEMOTHERAPY
     Route: 065
  2. EPIRUBICIN [Suspect]
     Active Substance: EPIRUBICIN
     Indication: RICHTER^S SYNDROME
     Dosage: FOURTH LINE CHEMOTHERAPY
     Route: 065
  3. PARACETAMOL [Concomitant]
     Active Substance: ACETAMINOPHEN
     Indication: PREMEDICATION
     Route: 065
  4. IMMUNOGLOBULIN [Concomitant]
     Active Substance: HUMAN IMMUNOGLOBULIN G
     Indication: INFECTION PROPHYLAXIS
     Route: 042
  5. ENDOXAN [Suspect]
     Active Substance: CYCLOPHOSPHAMIDE
     Indication: NON-HODGKIN^S LYMPHOMA
     Dosage: THIRD LINE CHEMOTHERAPY
     Route: 065
  6. ALEMTUZUMAB [Suspect]
     Active Substance: ALEMTUZUMAB
     Dosage: SECOND ADMINISTRATION OF ALEMTUZUMAB BASED THERAPY
     Route: 065
     Dates: start: 2005
  7. MITOXANTRONE [Suspect]
     Active Substance: MITOXANTRONE HYDROCHLORIDE
     Dosage: FOURTH LINE CHEMOTHERAPY
     Route: 065
  8. ETOPOSIDE. [Suspect]
     Active Substance: ETOPOSIDE
     Indication: RICHTER^S SYNDROME
     Dosage: SECOND ADMINISTRATION OF ALEMTUZUMAB BASED THERAPY
     Route: 065
     Dates: start: 2005
  9. CHLORAMBUCIL [Concomitant]
     Active Substance: CHLORAMBUCIL
     Indication: CHRONIC LYMPHOCYTIC LEUKAEMIA
     Route: 065
     Dates: end: 200101
  10. ENDOXAN [Suspect]
     Active Substance: CYCLOPHOSPHAMIDE
     Indication: RICHTER^S SYNDROME
     Dosage: R-CVP REGIMEN
     Route: 065
     Dates: end: 2002
  11. ENDOXAN [Suspect]
     Active Substance: CYCLOPHOSPHAMIDE
     Indication: CHRONIC LYMPHOCYTIC LEUKAEMIA
     Dosage: SECOND LINE CHEMOTHERAPY
     Route: 065
  12. ALEMTUZUMAB [Suspect]
     Active Substance: ALEMTUZUMAB
     Indication: NON-HODGKIN^S LYMPHOMA
     Dosage: ON DAYS 2, 3, 10 AND 11 (SECOND CYCLE)
     Route: 065
     Dates: end: 200403
  13. VINCRISTINE [Suspect]
     Active Substance: VINCRISTINE
     Indication: CHRONIC LYMPHOCYTIC LEUKAEMIA
     Route: 065
     Dates: start: 2002
  14. BLEOMYCIN [Suspect]
     Active Substance: BLEOMYCIN SULFATE
     Indication: RICHTER^S SYNDROME
     Dosage: FOURTH LINE CHEMOTHERAPY
     Route: 065
  15. RITUXIMAB [Suspect]
     Active Substance: RITUXIMAB
     Indication: CHRONIC LYMPHOCYTIC LEUKAEMIA
     Route: 065
     Dates: end: 2002
  16. ACYCLOVIR. [Concomitant]
     Active Substance: ACYCLOVIR
     Indication: INFECTION PROPHYLAXIS
     Route: 065
  17. ENDOXAN [Suspect]
     Active Substance: CYCLOPHOSPHAMIDE
     Dosage: SECOND ADMINISTRATION OF ALEMTUZUMAB BASED THERAPY
     Route: 065
     Dates: start: 2005
  18. DOXORUBICIN [Suspect]
     Active Substance: DOXORUBICIN
     Indication: RICHTER^S SYNDROME
     Dosage: SECOND LINE CHEMOTHERAPY
     Route: 065
  19. FLUDARABINE [Suspect]
     Active Substance: FLUDARABINE PHOSPHATE
     Indication: NON-HODGKIN^S LYMPHOMA
     Dosage: SECOND ADMINISTRATION OF ALEMTUZUMAB BASED THERAPY
     Route: 065
     Dates: start: 2005
  20. NYSTATIN. [Concomitant]
     Active Substance: NYSTATIN
     Indication: INFECTION PROPHYLAXIS
     Route: 048
  21. ALEMTUZUMAB [Suspect]
     Active Substance: ALEMTUZUMAB
     Indication: RICHTER^S SYNDROME
     Dosage: ON DAYS 1, 3, 5 DURING THE FIRST CYCLE OF CHEMOTHERAPY
     Route: 065
     Dates: start: 200312
  22. VINCRISTINE [Suspect]
     Active Substance: VINCRISTINE
     Indication: RICHTER^S SYNDROME
     Dosage: SECOND LINE CHEMOTHERAPY
     Route: 065
  23. FLUDARABINE [Suspect]
     Active Substance: FLUDARABINE PHOSPHATE
     Indication: RICHTER^S SYNDROME
     Dosage: THIRD LINE CHEMOTHERAPY
     Route: 065
  24. VINBLASTIN [Suspect]
     Active Substance: VINBLASTINE
     Indication: RICHTER^S SYNDROME
     Dosage: FOURTH LINE CHEMOTHERAPY
     Route: 065
  25. ALEMTUZUMAB [Suspect]
     Active Substance: ALEMTUZUMAB
     Dosage: ON DAYS 1, 2, 3 EVERY 14 OR 21 DAYS
     Route: 065
     Dates: start: 200404
  26. METHOTREXATE [Suspect]
     Active Substance: METHOTREXATE
     Indication: RICHTER^S SYNDROME
     Dosage: SECOND LINE CHEMOTHERAPY
     Route: 065
  27. PREDNISONE. [Concomitant]
     Active Substance: PREDNISONE
     Indication: PREMEDICATION
     Route: 065
  28. SULFAMETHOXAZOLE AND TRIMETHOPRIM [Concomitant]
     Active Substance: SULFAMETHOXAZOLE\TRIMETHOPRIM
     Indication: INFECTION PROPHYLAXIS
     Route: 065
  29. ENDOXAN [Suspect]
     Active Substance: CYCLOPHOSPHAMIDE
     Dosage: ON DAY 1, EVERY 28 DAYS
     Route: 065
     Dates: start: 200312, end: 200403
  30. DEXAMETHASONE. [Suspect]
     Active Substance: DEXAMETHASONE
     Indication: RICHTER^S SYNDROME
     Dosage: SECOND LINE CHEMOTHERAPY
     Route: 065
  31. CALCIUM LEUCOVORIN [Suspect]
     Active Substance: LEUCOVORIN CALCIUM
     Indication: RICHTER^S SYNDROME
     Dosage: SECOND LINE CHEMOTHERAPY
     Route: 065
  32. PROMETHAZINE [Concomitant]
     Active Substance: PROMETHAZINE\PROMETHAZINE HYDROCHLORIDE
     Indication: PREMEDICATION
     Route: 065
  33. ALEMTUZUMAB [Suspect]
     Active Substance: ALEMTUZUMAB
     Route: 065
  34. DOXORUBICIN [Suspect]
     Active Substance: DOXORUBICIN
     Dosage: ON DAY 1 EVERY 28 DAYS
     Route: 065
  35. DEXAMETHASONE. [Suspect]
     Active Substance: DEXAMETHASONE
     Dosage: FOURTH LINE CHEMOTHERAPY
     Route: 065
  36. PREDNISOLONE. [Suspect]
     Active Substance: PREDNISOLONE
     Indication: CHRONIC LYMPHOCYTIC LEUKAEMIA
     Route: 065
     Dates: end: 2002

REACTIONS (13)
  - Drug ineffective [Not Recovered/Not Resolved]
  - Therapy responder [Not Recovered/Not Resolved]
  - Richter^s syndrome [Recovered/Resolved]
  - Chronic lymphocytic leukaemia [Recovered/Resolved]
  - Febrile neutropenia [Unknown]
  - Therapy responder [Recovered/Resolved]
  - Pyrexia [Recovered/Resolved]
  - Refractory cancer [Not Recovered/Not Resolved]
  - Non-Hodgkin^s lymphoma [Not Recovered/Not Resolved]
  - Thrombocytopenia [Recovered/Resolved]
  - Bacterial sepsis [Unknown]
  - Neutropenia [Recovered/Resolved]
  - Septic shock [Unknown]

NARRATIVE: CASE EVENT DATE: 2005
